FAERS Safety Report 4361641-3 (Version None)
Quarter: 2004Q2

REPORT INFORMATION
  Report Type: 
  Country: None (occurrence: None)
  Receive Date: 20040521
  Receipt Date: 20040415
  Transmission Date: 20050107
  Serious: No
  Sender: FDA-Public Use
  Company Number: US-GLAXOSMITHKLINE-A0507269A

PATIENT
  Sex: Female

DRUGS (4)
  1. WELLBUTRIN [Suspect]
     Indication: DEPRESSION
     Dosage: 300MG PER DAY
     Route: 048
  2. AMBIEN [Concomitant]
     Indication: SLEEP DISORDER
  3. TRAZEC [Concomitant]
  4. DARVOCET [Concomitant]

REACTIONS (2)
  - FEELING JITTERY [None]
  - OVERDOSE [None]
